FAERS Safety Report 10934004 (Version 2)
Quarter: 2015Q1

REPORT INFORMATION
  Report Type: Spontaneous
  Country: PL (occurrence: PL)
  Receive Date: 20150320
  Receipt Date: 20150325
  Transmission Date: 20150721
  Serious: Yes (Other)
  Sender: FDA-Public Use
  Company Number: PHHY2015PL030676

PATIENT
  Age: 55 Year
  Sex: Female
  Weight: 63 kg

DRUGS (4)
  1. KETONAL [Suspect]
     Active Substance: KETOPROFEN
     Indication: PROCEDURAL PAIN
     Dosage: 100 MG, UNK
     Route: 042
     Dates: start: 20141128, end: 20141130
  2. CLEXANE [Concomitant]
     Active Substance: ENOXAPARIN SODIUM
     Indication: PROPHYLAXIS
     Dosage: 40 MG, UNK
     Route: 058
     Dates: start: 20141127
  3. TARFAZOLIN [Concomitant]
     Active Substance: CEFAZOLIN SODIUM
     Indication: PROPHYLAXIS
     Dosage: 1 G, Q8H
     Route: 065
     Dates: start: 20141128, end: 20141128
  4. MARCAINE [Suspect]
     Active Substance: BUPIVACAINE HYDROCHLORIDE
     Indication: SPINAL ANAESTHESIA
     Dosage: 3.2 ML, Q8H
     Route: 037
     Dates: start: 20141128, end: 20141128

REACTIONS (3)
  - Cold sweat [Recovered/Resolved]
  - Hypoaesthesia [Recovered/Resolved]
  - Heart rate decreased [Recovered/Resolved]

NARRATIVE: CASE EVENT DATE: 20141128
